FAERS Safety Report 17170535 (Version 2)
Quarter: 2020Q1

REPORT INFORMATION
  Report Type: Spontaneous
  Country: JP (occurrence: JP)
  Receive Date: 20191218
  Receipt Date: 20200123
  Transmission Date: 20200409
  Serious: Yes (Death, Life-Threatening, Hospitalization, Other)
  Sender: FDA-Public Use
  Company Number: JP-CELGENEUS-JPN-20191206131

PATIENT
  Age: 65 Year
  Sex: Male

DRUGS (26)
  1. ABRAXANE [Suspect]
     Active Substance: PACLITAXEL
     Dosage: 167 MILLIGRAM
     Route: 042
     Dates: start: 20190523, end: 20190523
  2. ABRAXANE [Suspect]
     Active Substance: PACLITAXEL
     Dosage: 100 MILLIGRAM
     Route: 042
     Dates: start: 20190725, end: 20190725
  3. PREDNISOLONE. [Suspect]
     Active Substance: PREDNISOLONE
     Dosage: 240 MILLIGRAM
     Route: 042
     Dates: start: 20190826, end: 20190902
  4. PREDNISOLONE. [Suspect]
     Active Substance: PREDNISOLONE
     Dosage: 240 MILLIGRAM
     Route: 042
     Dates: start: 20190926
  5. ABRAXANE [Suspect]
     Active Substance: PACLITAXEL
     Dosage: 100 MILLIGRAM
     Route: 042
     Dates: start: 20190808, end: 20190808
  6. CARBOPLATIN. [Suspect]
     Active Substance: CARBOPLATIN
     Indication: NON-SMALL CELL LUNG CANCER
     Dosage: 595 MG
     Route: 042
     Dates: start: 20190516, end: 20190516
  7. ABRAXANE [Suspect]
     Active Substance: PACLITAXEL
     Dosage: 167 MILLIGRAM
     Route: 042
     Dates: start: 20190627, end: 20190627
  8. PREDNISOLONE. [Suspect]
     Active Substance: PREDNISOLONE
     Indication: NON-SMALL CELL LUNG CANCER
     Dosage: 4000 MILLIGRAM
     Route: 042
     Dates: start: 20190823, end: 20190825
  9. ABRAXANE [Suspect]
     Active Substance: PACLITAXEL
     Dosage: 100 MILLIGRAM
     Route: 042
     Dates: start: 20190801, end: 20190801
  10. DURVALUMAB. [Suspect]
     Active Substance: DURVALUMAB
     Dosage: 1500 MILLIGRAM
     Route: 042
     Dates: start: 20190606, end: 20190606
  11. PREDNISOLONE. [Suspect]
     Active Substance: PREDNISOLONE
     Dosage: 240 MILLIGRAM
     Route: 042
     Dates: start: 20190903, end: 20190911
  12. DURVALUMAB. [Suspect]
     Active Substance: DURVALUMAB
     Indication: NON-SMALL CELL LUNG CANCER
     Dosage: 1500 MILLIGRAM
     Route: 042
     Dates: start: 20190516, end: 20190516
  13. ABRAXANE [Suspect]
     Active Substance: PACLITAXEL
     Dosage: 167 MILLIGRAM
     Route: 042
     Dates: start: 20190606, end: 20190606
  14. ABRAXANE [Suspect]
     Active Substance: PACLITAXEL
     Dosage: 167 MILLIGRAM
     Route: 042
     Dates: start: 20190620, end: 20190620
  15. DURVALUMAB. [Suspect]
     Active Substance: DURVALUMAB
     Dosage: 1500 MG
     Route: 042
     Dates: start: 20190627, end: 20190627
  16. DURVALUMAB. [Suspect]
     Active Substance: DURVALUMAB
     Dosage: 1500 MG
     Route: 042
     Dates: start: 20190725, end: 20190725
  17. PREDNISOLONE. [Suspect]
     Active Substance: PREDNISOLONE
     Dosage: 240 MILLIGRAM
     Route: 042
     Dates: start: 20190912, end: 20190918
  18. PREDNISOLONE. [Suspect]
     Active Substance: PREDNISOLONE
     Dosage: 240 MILLIGRAM
     Route: 042
     Dates: start: 20190919, end: 20190925
  19. ABRAXANE [Suspect]
     Active Substance: PACLITAXEL
     Indication: NON-SMALL CELL LUNG CANCER
     Dosage: 167 MILLIGRAM
     Route: 042
     Dates: start: 20190516, end: 20190516
  20. ABRAXANE [Suspect]
     Active Substance: PACLITAXEL
     Dosage: 167 MILLIGRAM
     Route: 042
     Dates: start: 20190613, end: 20190613
  21. CARBOPLATIN. [Suspect]
     Active Substance: CARBOPLATIN
     Dosage: 595 MILLIGRAM
     Route: 042
     Dates: start: 20190606, end: 20190606
  22. ABRAXANE [Suspect]
     Active Substance: PACLITAXEL
     Dosage: 167 MILLIGRAM
     Route: 042
     Dates: start: 20190530, end: 20190530
  23. ABRAXANE [Suspect]
     Active Substance: PACLITAXEL
     Dosage: 167 MILLIGRAM
     Route: 042
     Dates: start: 20190704, end: 20190704
  24. ABRAXANE [Suspect]
     Active Substance: PACLITAXEL
     Dosage: 167 MILLIGRAM
     Route: 042
     Dates: start: 20190711, end: 20190711
  25. CARBOPLATIN. [Suspect]
     Active Substance: CARBOPLATIN
     Dosage: 595 MILLIGRAM
     Route: 042
     Dates: start: 20190627, end: 20190627
  26. CARBOPLATIN. [Suspect]
     Active Substance: CARBOPLATIN
     Dosage: 595 MILLIGRAM
     Route: 042
     Dates: start: 20190725, end: 20190725

REACTIONS (1)
  - Meningoencephalitis herpetic [Fatal]

NARRATIVE: CASE EVENT DATE: 20190918
